FAERS Safety Report 13939759 (Version 1)
Quarter: 2017Q3

REPORT INFORMATION
  Report Type: Spontaneous
  Country: US (occurrence: US)
  Receive Date: 20170906
  Receipt Date: 20170906
  Transmission Date: 20171127
  Serious: No
  Sender: FDA-Public Use
  Company Number: None

PATIENT
  Age: 52 Year
  Sex: Female
  Weight: 62.1 kg

DRUGS (1)
  1. PICATO [Suspect]
     Active Substance: INGENOL MEBUTATE
     Indication: PRECANCEROUS SKIN LESION
     Dosage: QUANTITY:3 GEL;OTHER ROUTE:APPLIED TO LIP?
     Dates: start: 20170827, end: 20170830

REACTIONS (2)
  - Thermal burn [None]
  - Blister [None]

NARRATIVE: CASE EVENT DATE: 20170901
